FAERS Safety Report 6024254-3 (Version None)
Quarter: 2008Q4

REPORT INFORMATION
  Report Type: 
  Country: None (occurrence: None)
  Receive Date: 20081229
  Receipt Date: 20081212
  Transmission Date: 20090506
  Serious: Yes (Other)
  Sender: FDA-Public Use
  Company Number: 2008AL012478

PATIENT
  Age: 17 Year
  Sex: Male

DRUGS (2)
  1. DIAZEPAM [Suspect]
     Dates: start: 20081001
  2. GEODON [Concomitant]

REACTIONS (9)
  - AGGRESSION [None]
  - AGITATION [None]
  - AMNESIA [None]
  - DISORIENTATION [None]
  - DIZZINESS [None]
  - DRUG INEFFECTIVE [None]
  - HALLUCINATION [None]
  - ILL-DEFINED DISORDER [None]
  - INSOMNIA [None]
